FAERS Safety Report 21637187 (Version 6)
Quarter: 2025Q3

REPORT INFORMATION
  Report Type: Report from Study
  Country: US (occurrence: US)
  Receive Date: 20221124
  Receipt Date: 20250729
  Transmission Date: 20251021
  Serious: Yes (Other)
  Sender: TAKEDA
  Company Number: US-TAKEDA-2020TUS057333

PATIENT
  Sex: Female

DRUGS (2)
  1. HUMAN IMMUNOGLOBULIN G [Suspect]
     Active Substance: HUMAN IMMUNOGLOBULIN G
     Indication: Primary immunodeficiency syndrome
  2. HUMAN IMMUNOGLOBULIN G [Suspect]
     Active Substance: HUMAN IMMUNOGLOBULIN G
     Indication: Hypogammaglobulinaemia

REACTIONS (16)
  - Neuropathy peripheral [Unknown]
  - Generalised tonic-clonic seizure [Unknown]
  - Cataract [Unknown]
  - Skin disorder [Unknown]
  - Infection [Recovering/Resolving]
  - Axillary mass [Unknown]
  - Limb mass [Unknown]
  - Post procedural infection [Unknown]
  - Staphylococcal infection [Unknown]
  - Thyroid disorder [Unknown]
  - Post procedural haemorrhage [Unknown]
  - Swelling face [Unknown]
  - Hypoaesthesia [Unknown]
  - Paraesthesia [Unknown]
  - Hypersensitivity [Unknown]
  - Fatigue [Unknown]
